FAERS Safety Report 18909060 (Version 1)
Quarter: 2021Q1

REPORT INFORMATION
  Report Type: Spontaneous
  Country: US (occurrence: US)
  Receive Date: 20210218
  Receipt Date: 20210218
  Transmission Date: 20210420
  Serious: Yes (Other)
  Sender: FDA-Public Use
  Company Number: US-AMGEN-USASP2021025216

PATIENT
  Sex: Female

DRUGS (5)
  1. HERCEPTIN [Concomitant]
     Active Substance: TRASTUZUMAB
  2. PERJETA [Concomitant]
     Active Substance: PERTUZUMAB
  3. DOCETAXEL. [Concomitant]
     Active Substance: DOCETAXEL
  4. KANJINTI [Suspect]
     Active Substance: TRASTUZUMAB-ANNS
     Indication: BREAST CANCER FEMALE
     Dosage: UNK
     Route: 065
  5. PACLITAXEL. [Concomitant]
     Active Substance: PACLITAXEL

REACTIONS (9)
  - Arthralgia [Recovering/Resolving]
  - Diarrhoea [Recovered/Resolved]
  - Infusion related reaction [Unknown]
  - Back pain [Recovering/Resolving]
  - Pneumoperitoneum [Unknown]
  - Ear pain [Unknown]
  - Off label use [Unknown]
  - Fatigue [Unknown]
  - Rectal haemorrhage [Unknown]
